FAERS Safety Report 18194111 (Version 3)
Quarter: 2021Q1

REPORT INFORMATION
  Report Type: Report from Study
  Country: AR (occurrence: AR)
  Receive Date: 20200825
  Receipt Date: 20210226
  Transmission Date: 20210419
  Serious: Yes (Hospitalization, Other)
  Sender: FDA-Public Use
  Company Number: NVSC2020AR232315

PATIENT
  Age: 71 Year
  Sex: Male

DRUGS (2)
  1. ONBRIZE BREEZHALER [Suspect]
     Active Substance: INDACATEROL MALEATE
     Indication: CHRONIC OBSTRUCTIVE PULMONARY DISEASE
     Dosage: 1 OF 300
     Route: 065
     Dates: end: 20200819
  2. ONBRIZE BREEZHALER [Suspect]
     Active Substance: INDACATEROL MALEATE
     Dosage: 1 DF, QD, STARTS 10 YEARS AGO AND STOPS 6 MONTHS AGO
     Route: 065

REACTIONS (2)
  - Lung neoplasm malignant [Unknown]
  - Metastases to kidney [Unknown]

NARRATIVE: CASE EVENT DATE: 201907
